FAERS Safety Report 7749258-1 (Version None)
Quarter: 2011Q3

REPORT INFORMATION
  Report Type: 
  Country: None (occurrence: None)
  Receive Date: 20110914
  Receipt Date: 20110908
  Transmission Date: 20111222
  Serious: Yes (Death, Other)
  Sender: FDA-Public Use
  Company Number: JP-PFIZER INC-2011203572

PATIENT
  Age: 74 Year
  Sex: Female

DRUGS (4)
  1. VANCOMYCIN [Concomitant]
     Dosage: 750 MG, 2X/DAY
     Route: 041
     Dates: start: 20110830
  2. VFEND [Suspect]
     Dosage: 200 MG, UNK
     Route: 042
     Dates: start: 20110826
  3. LEVOFLOXACIN [Concomitant]
     Route: 041
  4. VFEND [Suspect]
     Dosage: 200 MG, UNK
     Route: 048
     Dates: start: 20110902, end: 20110907

REACTIONS (3)
  - HEPATIC FUNCTION ABNORMAL [None]
  - RENAL IMPAIRMENT [None]
  - HEPATIC NEOPLASM MALIGNANT [None]
